FAERS Safety Report 24642411 (Version 1)
Quarter: 2024Q4

REPORT INFORMATION
  Report Type: Spontaneous
  Country: US (occurrence: None)
  Receive Date: 20241120
  Receipt Date: 20241120
  Transmission Date: 20250115
  Serious: Yes (Hospitalization)
  Sender: Public
  Company Number: None

PATIENT
  Sex: Female

DRUGS (11)
  1. POMALYST [Suspect]
     Active Substance: POMALIDOMIDE
     Indication: Plasma cell myeloma
     Dosage: FREQUENCY : AS DIRECTED;?FREQ: TAKE 1 CAPSULE BY MOUTH EVERY DAY FOR 21 DAYS EVERY 28 DAY CYCLE. TAK
     Route: 048
     Dates: start: 20241109
  2. ALBUTEROL [Concomitant]
     Active Substance: ALBUTEROL
  3. COMBIVENT [Concomitant]
     Active Substance: ALBUTEROL SULFATE\IPRATROPIUM BROMIDE
  4. FAMOTIDINE [Concomitant]
     Active Substance: FAMOTIDINE
  5. FERROUS SULFATE [Concomitant]
     Active Substance: FERROUS SULFATE
  6. FLUTICASONE [Concomitant]
     Active Substance: FLUTICASONE
  7. MUPIROCIN [Concomitant]
     Active Substance: MUPIROCIN
  8. POMALYST [Concomitant]
     Active Substance: POMALIDOMIDE
  9. TOLNAFTATE [Concomitant]
     Active Substance: TOLNAFTATE
  10. TRELEGY ELLIPTA [Concomitant]
     Active Substance: FLUTICASONE FUROATE\UMECLIDINIUM BROMIDE\VILANTEROL TRIFENATATE
  11. TUMS [Concomitant]
     Active Substance: CALCIUM CARBONATE

REACTIONS (4)
  - Deep vein thrombosis [None]
  - Pneumonia [None]
  - Neutropenia [None]
  - Back pain [None]
